FAERS Safety Report 11128948 (Version 2)
Quarter: 2015Q2

REPORT INFORMATION
  Report Type: Spontaneous
  Country: CH (occurrence: CH)
  Receive Date: 20150521
  Receipt Date: 20150521
  Transmission Date: 20150821
  Serious: Yes (Congenital Anomaly)
  Sender: FDA-Public Use
  Company Number: PHHY2015CH058672

PATIENT
  Age: 30 Year
  Sex: Female

DRUGS (4)
  1. TRANDATE [Suspect]
     Active Substance: LABETALOL HYDROCHLORIDE
     Indication: HYPERTENSION
     Dosage: 100 MG, BID
     Route: 048
     Dates: start: 20140611
  2. RASILEZ HCT [Suspect]
     Active Substance: ALISKIREN\HYDROCHLOROTHIAZIDE
     Indication: HYPERTENSION
     Dosage: 325 MG, QD (300 MG ALIS AND 25 MG HCTZ)
     Route: 048
     Dates: end: 20140605
  3. METFIN [Suspect]
     Active Substance: METFORMIN HYDROCHLORIDE
     Indication: POLYCYSTIC OVARIES
     Dosage: 500 MG, TID
     Route: 048
     Dates: end: 20140605
  4. TRETINAC [Suspect]
     Active Substance: ISOTRETINOIN
     Indication: PRODUCT USED FOR UNKNOWN INDICATION
     Dosage: 10 MG, QOD
     Route: 048
     Dates: start: 2014, end: 20150411

REACTIONS (3)
  - Abortion [Recovered/Resolved]
  - Exposure during pregnancy [Recovered/Resolved]
  - Trisomy 15 [Recovered/Resolved]

NARRATIVE: CASE EVENT DATE: 2014
